FAERS Safety Report 11436830 (Version 1)
Quarter: 2015Q3

REPORT INFORMATION
  Report Type: Spontaneous
  Country: US (occurrence: US)
  Receive Date: 20150821
  Receipt Date: 20150821
  Transmission Date: 20151125
  Serious: No
  Sender: FDA-Public Use
  Company Number: US-ELI_LILLY_AND_COMPANY-US200612004199

PATIENT
  Age: 57 Year
  Sex: Female

DRUGS (12)
  1. PREVACID [Concomitant]
     Active Substance: LANSOPRAZOLE
  2. NORVASC [Concomitant]
     Active Substance: AMLODIPINE BESYLATE
  3. ADVAIR HFA [Concomitant]
     Active Substance: FLUTICASONE PROPIONATE\SALMETEROL XINAFOATE
  4. ASA [Concomitant]
     Active Substance: ASPIRIN
  5. ESTROGENS CONJUGATED [Concomitant]
     Active Substance: ESTROGENS, CONJUGATED
     Indication: HORMONE REPLACEMENT THERAPY
  6. ATENOLOL. [Concomitant]
     Active Substance: ATENOLOL
  7. ALBUTEROL. [Concomitant]
     Active Substance: ALBUTEROL
  8. CYMBALTA [Suspect]
     Active Substance: DULOXETINE HYDROCHLORIDE
     Indication: ANXIETY DISORDER
     Dosage: 30 MG, DAILY (1/D)
     Dates: start: 200611, end: 20061221
  9. SINGULAIR [Concomitant]
     Active Substance: MONTELUKAST SODIUM
  10. PAXIL [Concomitant]
     Active Substance: PAROXETINE HYDROCHLORIDE
     Indication: ANXIETY
  11. ATIVAN [Concomitant]
     Active Substance: LORAZEPAM
     Dosage: UNK, AS NEEDED
  12. LORTAB [Concomitant]
     Active Substance: ACETAMINOPHEN\HYDROCODONE BITARTRATE
     Dosage: 5 MG, UNK

REACTIONS (5)
  - Urticaria [Recovered/Resolved]
  - Swollen tongue [Recovered/Resolved]
  - Pain [Recovered/Resolved]
  - Wheezing [Recovered/Resolved]
  - Fear [Recovered/Resolved]

NARRATIVE: CASE EVENT DATE: 200612
